FAERS Safety Report 13302664 (Version 6)
Quarter: 2020Q1

REPORT INFORMATION
  Report Type: Spontaneous
  Country: NO (occurrence: NO)
  Receive Date: 20170307
  Receipt Date: 20200123
  Transmission Date: 20200409
  Serious: Yes (Life-Threatening, Hospitalization, Other)
  Sender: FDA-Public Use
  Company Number: NO-SA-2017SA034170

PATIENT
  Age: 58 Year
  Sex: Male

DRUGS (19)
  1. RIFINAH [Concomitant]
     Active Substance: ISONIAZID\RIFAMPIN
     Indication: ANTIBIOTIC PROPHYLAXIS
     Dosage: 300 MG,QD
     Route: 048
     Dates: start: 20160712, end: 20161012
  2. GENTAMICIN. [Concomitant]
     Active Substance: GENTAMICIN
     Indication: TUBULOINTERSTITIAL NEPHRITIS
     Dosage: 540 MG,QD
     Route: 042
     Dates: start: 20170105, end: 20170106
  3. RIFINAH [Concomitant]
     Active Substance: ISONIAZID\RIFAMPIN
     Dosage: 300/150MG, BID
     Route: 065
     Dates: start: 201606, end: 201609
  4. ATORVASTATIN [Concomitant]
     Active Substance: ATORVASTATIN
     Indication: HYPERCHOLESTEROLAEMIA
     Dosage: 20 MG,QD
     Route: 048
     Dates: start: 2011
  5. AMPICILLIN [Concomitant]
     Active Substance: AMPICILLIN
     Indication: TUBULOINTERSTITIAL NEPHRITIS
     Dosage: 2 DF,QID
     Route: 042
     Dates: start: 20170105, end: 20170110
  6. ARCOXIA [Concomitant]
     Active Substance: ETORICOXIB
     Dosage: 90 MG, QD
     Route: 065
  7. ASA [Concomitant]
     Active Substance: ASPIRIN
     Dosage: UNK
  8. VITAMIN D3 [Concomitant]
     Active Substance: CHOLECALCIFEROL
     Indication: VITAMIN D DECREASED
     Dosage: 1 DF,BIW
     Route: 048
  9. STESOLID [Concomitant]
     Active Substance: DIAZEPAM
     Indication: MUSCLE SPASMS
     Dosage: 1 DF,PRN
     Route: 048
  10. FAMPYRA [Concomitant]
     Active Substance: DALFAMPRIDINE
     Indication: MULTIPLE SCLEROSIS
     Dosage: 10 MG,BID
     Route: 048
     Dates: start: 20120404
  11. SATIVEX [Concomitant]
     Active Substance: NABIXIMOLS
     Indication: MUSCLE SPASTICITY
     Dosage: 4 DF,BID
     Route: 048
     Dates: start: 20131020
  12. SOMAC [Concomitant]
     Active Substance: PANTOPRAZOLE SODIUM
     Dosage: UNK UNK,QD
     Route: 048
  13. PARACETAMOL [Concomitant]
     Active Substance: ACETAMINOPHEN
     Dosage: UNK UNK,QD
     Route: 048
  14. LEMTRADA [Suspect]
     Active Substance: ALEMTUZUMAB
     Indication: MULTIPLE SCLEROSIS
     Dosage: 12 MG,QD
     Route: 041
     Dates: start: 20160822, end: 20160826
  15. FOLIC ACID. [Concomitant]
     Active Substance: FOLIC ACID
     Indication: FOLATE DEFICIENCY
     Dosage: 1 DF,BIW
     Route: 048
     Dates: start: 201512
  16. BACTRIM [Concomitant]
     Active Substance: SULFAMETHOXAZOLE\TRIMETHOPRIM
     Indication: TUBULOINTERSTITIAL NEPHRITIS
     Dosage: 1 DF,BID
     Route: 048
     Dates: start: 20170103, end: 20170105
  17. COLECALCIFEROL [Concomitant]
     Active Substance: CHOLECALCIFEROL
     Indication: VITAMIN D DECREASED
     Dosage: 20 UG,UNK
     Route: 048
  18. LORATADINE. [Concomitant]
     Active Substance: LORATADINE
     Indication: HYPERSENSITIVITY
     Dosage: 10 MG,BID
     Route: 048
  19. ALBYL-E [Concomitant]
     Active Substance: ASPIRIN\MAGNESIUM OXIDE
     Indication: PROPHYLAXIS
     Dosage: 75 MG,QD
     Route: 048
     Dates: start: 2011, end: 201702

REACTIONS (21)
  - Immune thrombocytopenic purpura [Recovering/Resolving]
  - Vomiting [Unknown]
  - Urinary tract infection [Unknown]
  - Nasopharyngitis [Unknown]
  - Pyrexia [Unknown]
  - Jaundice [Unknown]
  - Oropharyngeal pain [Unknown]
  - Rash macular [Unknown]
  - Gingival bleeding [Recovered/Resolved]
  - Platelet count decreased [Recovered/Resolved]
  - Haemolytic anaemia [Unknown]
  - General physical health deterioration [Unknown]
  - Aphasia [Unknown]
  - Pulse abnormal [Unknown]
  - Tubulointerstitial nephritis [Unknown]
  - Contusion [Unknown]
  - Haemoglobin decreased [Unknown]
  - Skin haemorrhage [Recovering/Resolving]
  - Blood blister [Recovering/Resolving]
  - Petechiae [Recovering/Resolving]
  - Thrombosis [Unknown]

NARRATIVE: CASE EVENT DATE: 20170103
